FAERS Safety Report 24165892 (Version 1)
Quarter: 2024Q3

REPORT INFORMATION
  Report Type: Report from Study
  Country: US (occurrence: US)
  Receive Date: 20240802
  Receipt Date: 20240802
  Transmission Date: 20241016
  Serious: Yes (Other)
  Sender: ABBVIE
  Company Number: US-ABBVIE-5863152

PATIENT
  Age: 41 Year
  Sex: Female

DRUGS (1)
  1. SKYRIZI [Suspect]
     Active Substance: RISANKIZUMAB-RZAA
     Indication: Product used for unknown indication
     Route: 058
     Dates: start: 20230410

REACTIONS (8)
  - Pulmonary thrombosis [Not Recovered/Not Resolved]
  - Chills [Unknown]
  - Hypertension [Unknown]
  - Cough [Unknown]
  - Malaise [Unknown]
  - Fall [Unknown]
  - Dizziness [Unknown]
  - Cold sweat [Unknown]

NARRATIVE: CASE EVENT DATE: 20240701
